FAERS Safety Report 9855551 (Version 1)
Quarter: 2013Q4

REPORT INFORMATION
  Report Type: Spontaneous
  Country: US (occurrence: None)
  Receive Date: 20131226
  Receipt Date: 20131226
  Transmission Date: 20140711
  Serious: Yes (Other)
  Sender: FDA-Public Use
  Company Number: PHEH2012US025175

PATIENT
  Sex: Male

DRUGS (1)
  1. SANDOSTATIN LAR DEPOT (OCTREOTIDE WITH POLY(D L-LACTIDE-CO-GLYCOLIDE)) UNKNOWN [Suspect]

REACTIONS (3)
  - Neoplasm recurrence [None]
  - Hyperchlorhydria [None]
  - Abdominal discomfort [None]
